FAERS Safety Report 8366180-0 (Version None)
Quarter: 2012Q1

REPORT INFORMATION
  Report Type: 
  Country: None (occurrence: None)
  Receive Date: 20120323
  Receipt Date: 20110412
  Transmission Date: 20120608
  Serious: Yes (Other)
  Sender: FDA-Public Use
  Company Number: 163-21880-11041373

PATIENT
  Age: 87 Year
  Sex: Female

DRUGS (10)
  1. REVLIMID [Suspect]
     Indication: MULTIPLE MYELOMA
     Dosage: 10 MG, 1 IN 1 D, PO  , 5 MG, 1 IN 1 D, PO
     Route: 048
     Dates: start: 20091218
  2. REVLIMID [Suspect]
     Indication: MULTIPLE MYELOMA
     Dosage: 10 MG, 1 IN 1 D, PO  , 5 MG, 1 IN 1 D, PO
     Route: 048
     Dates: start: 20100201
  3. REVLIMID [Suspect]
     Indication: MULTIPLE MYELOMA
     Dosage: 10 MG, 1 IN 1 D, PO  , 5 MG, 1 IN 1 D, PO
     Route: 048
     Dates: start: 20110301, end: 20110101
  4. REVLIMID [Suspect]
     Indication: MULTIPLE MYELOMA
     Dosage: 10 MG, 1 IN 1 D, PO  , 5 MG, 1 IN 1 D, PO
     Route: 048
     Dates: start: 20101101
  5. PERCOCET (OXYCOCET)(UNKNOWN) [Concomitant]
  6. MIRALAX (MACROGOL)(UNKNOWN) [Concomitant]
  7. LIDODERM (LIDOCAINE)(UNKNOWN) [Concomitant]
  8. GABAPENTIN [Concomitant]
  9. FENTANYL [Concomitant]
  10. FLEXERIL [Concomitant]

REACTIONS (1)
  - FULL BLOOD COUNT DECREASED [None]
